FAERS Safety Report 9160349 (Version 1)
Quarter: 2013Q1

REPORT INFORMATION
  Report Type: Spontaneous
  Country: BR (occurrence: BR)
  Receive Date: 20130313
  Receipt Date: 20130313
  Transmission Date: 20140127
  Serious: Yes (Other)
  Sender: FDA-Public Use
  Company Number: BR-PFIZER INC-2013079111

PATIENT
  Age: 58 Year
  Sex: Female

DRUGS (1)
  1. EFEXOR XR [Suspect]
     Dosage: UNK, 1X/DAY
     Route: 048

REACTIONS (2)
  - Vein disorder [Unknown]
  - Cataract [Unknown]
